FAERS Safety Report 7161229-5 (Version None)
Quarter: 2010Q4

REPORT INFORMATION
  Report Type: 
  Country: None (occurrence: None)
  Receive Date: 20101201
  Receipt Date: 20101119
  Transmission Date: 20110411
  Serious: No
  Sender: FDA-Public Use
  Company Number: WAES 1010CHN00014

PATIENT
  Age: 61 Year
  Sex: Male

DRUGS (6)
  1. ZOCOR [Suspect]
     Indication: HYPERCHOLESTEROLAEMIA
     Dosage: 40 MG DAILY, PO
     Route: 048
     Dates: start: 20071207, end: 20100715
  2. PLACEBO [Suspect]
     Indication: HIGH DENSITY LIPOPROTEIN DECREASED
     Dosage: PO
     Route: 048
     Dates: start: 20080229, end: 20100715
  3. TAB LAROPIPRNAT (+) NIACIN [Suspect]
     Indication: HIGH DENSITY LIPOPROTEIN DECREASED
     Dosage: 20 MG-1GM DAIL PO; 40 MG-2 GM DAILY PO
     Route: 048
     Dates: end: 20080228
  4. TAB LAROPIPRNAT (+) NIACIN [Suspect]
     Indication: HIGH DENSITY LIPOPROTEIN DECREASED
     Dosage: 20 MG-1GM DAIL PO; 40 MG-2 GM DAILY PO
     Route: 048
     Dates: start: 20080104
  5. ASPIRIN [Concomitant]
  6. LORATADINE [Concomitant]

REACTIONS (6)
  - ANTINUCLEAR ANTIBODY POSITIVE [None]
  - CHOLELITHIASIS [None]
  - DIARRHOEA [None]
  - HENOCH-SCHONLEIN PURPURA [None]
  - THROMBIN TIME PROLONGED [None]
  - URTICARIA [None]
